FAERS Safety Report 14284028 (Version 1)
Quarter: 2017Q4

REPORT INFORMATION
  Report Type: Spontaneous
  Country: RU (occurrence: RU)
  Receive Date: 20171214
  Receipt Date: 20171214
  Transmission Date: 20180321
  Serious: Yes (Other)
  Sender: FDA-Public Use
  Company Number: RU-ASTRAZENECA-2017SF26353

PATIENT
  Age: 49 Year
  Sex: Male
  Weight: 91 kg

DRUGS (2)
  1. FORXIGA [Suspect]
     Active Substance: DAPAGLIFLOZIN
     Indication: TYPE 2 DIABETES MELLITUS
     Dosage: HALF A TABLET
     Route: 048
     Dates: start: 2016
  2. MANINIL [Concomitant]
     Active Substance: GLYBURIDE

REACTIONS (2)
  - Intentional product misuse [Recovered/Resolved]
  - Blindness transient [Recovered/Resolved]
